FAERS Safety Report 15088594 (Version 1)
Quarter: 2018Q2

REPORT INFORMATION
  Report Type: Spontaneous
  Country: US (occurrence: US)
  Receive Date: 20180629
  Receipt Date: 20180629
  Transmission Date: 20180711
  Serious: No
  Sender: FDA-Public Use
  Company Number: US-ASTRAZENECA-2018SE73222

PATIENT
  Age: 63 Year
  Sex: Female
  Weight: 120.2 kg

DRUGS (1)
  1. BYDUREON [Suspect]
     Active Substance: EXENATIDE
     Indication: TYPE 2 DIABETES MELLITUS
     Route: 058
     Dates: start: 2017

REACTIONS (5)
  - Injection site pain [Unknown]
  - Injection site pain [Unknown]
  - Intentional product misuse [Unknown]
  - Device malfunction [Not Recovered/Not Resolved]
  - Wrong technique in device usage process [Unknown]

NARRATIVE: CASE EVENT DATE: 2017
